FAERS Safety Report 8654240 (Version 2)
Quarter: 2013Q3

REPORT INFORMATION
  Report Type: Report from Study
  Country: JP (occurrence: JP)
  Receive Date: 20120709
  Receipt Date: 20130703
  Transmission Date: 20140515
  Serious: Yes (Other)
  Sender: FDA-Public Use
  Company Number: PHHY2012JP058346

PATIENT
  Age: 37 Year
  Sex: Male

DRUGS (25)
  1. AMN107 [Suspect]
     Indication: CHRONIC MYELOID LEUKAEMIA
     Dosage: 800 MG, DAILY
     Route: 048
     Dates: start: 20090330, end: 20090412
  2. AMN107 [Suspect]
     Dosage: 400 MG, DAILY
     Route: 048
     Dates: start: 20090507, end: 20090610
  3. AMN107 [Suspect]
     Dosage: 600 MG, DAILY
     Route: 048
     Dates: start: 20090611, end: 20090708
  4. AMN107 [Suspect]
     Dosage: 800 MG, DAILY
     Route: 048
     Dates: start: 20090709, end: 20090804
  5. AMN107 [Suspect]
     Dosage: 400 MG, DAILY
     Route: 048
     Dates: start: 20090805, end: 20090901
  6. AMN107 [Suspect]
     Dosage: 600 MG, DAILY
     Route: 048
     Dates: start: 20090902, end: 20090915
  7. AMN107 [Suspect]
     Dosage: 400 MG, DAILY
     Route: 048
     Dates: start: 20090916, end: 20091006
  8. AMN107 [Suspect]
     Dosage: 400 MG, DAILY
     Route: 048
     Dates: start: 20091014, end: 20100202
  9. AMN107 [Suspect]
     Dosage: 600 MG, DAILY
     Route: 048
     Dates: start: 20100203, end: 20100829
  10. VOLTAREN EMULGEL [Concomitant]
     Indication: BACK PAIN
     Dosage: 50 G
     Route: 061
     Dates: start: 20100217, end: 20100224
  11. SALOBEL [Concomitant]
     Indication: PROPHYLAXIS
     Dosage: 200 MG
     Route: 048
     Dates: start: 20090514
  12. SALOBEL [Concomitant]
     Dosage: 100 MG
     Route: 048
     Dates: end: 20090722
  13. GLYCYRON [Concomitant]
     Dosage: 210 MG
     Route: 048
     Dates: start: 20090409, end: 20090818
  14. URSO [Concomitant]
     Dosage: 300 MG
     Dates: start: 20090430, end: 20091006
  15. KLARICID [Concomitant]
     Indication: UPPER RESPIRATORY TRACT INFLAMMATION
     Dosage: 400 MG
     Dates: start: 20091209, end: 20091215
  16. DASEN [Concomitant]
     Indication: UPPER RESPIRATORY TRACT INFLAMMATION
     Dosage: 30 MG
     Route: 048
     Dates: start: 20091209, end: 20091215
  17. NITROPEN [Concomitant]
     Indication: ANGINA PECTORIS
     Dosage: 0.3 MG
     Route: 048
     Dates: start: 20091222, end: 20091229
  18. MYSER [Concomitant]
     Indication: ECZEMA
     Dosage: 5 G
     Dates: start: 20100414, end: 20100424
  19. SPRYCEL [Concomitant]
     Indication: CHRONIC MYELOID LEUKAEMIA
     Dosage: 100 MG
     Route: 048
     Dates: start: 20100902
  20. PARIET [Concomitant]
     Indication: PROPHYLAXIS
     Dosage: 10 MG
     Route: 048
     Dates: start: 20100902, end: 20101017
  21. ACICLOVIR [Concomitant]
     Indication: PROPHYLAXIS
     Dosage: 200 MG
     Dates: start: 20100902
  22. BAKTAR [Concomitant]
     Indication: PROPHYLAXIS
     Dosage: 1 G
     Dates: start: 20100902, end: 20101017
  23. BIOFERMIN [Concomitant]
     Indication: PROPHYLAXIS
     Dosage: 3 DF
     Route: 048
     Dates: start: 20100917, end: 20101114
  24. CRAVIT [Concomitant]
     Dosage: 500 MG
     Route: 048
     Dates: start: 20100917, end: 20100919
  25. LAC B [Concomitant]
     Dosage: 3 G
     Route: 048
     Dates: start: 20100923, end: 20101017

REACTIONS (1)
  - Hyperbilirubinaemia [Not Recovered/Not Resolved]
